FAERS Safety Report 22056716 (Version 4)
Quarter: 2023Q1

REPORT INFORMATION
  Report Type: Report from Study
  Country: US (occurrence: US)
  Receive Date: 20230302
  Receipt Date: 20230330
  Transmission Date: 20230417
  Serious: No
  Sender: FDA-Public Use
  Company Number: US-002147023-NVSC2023US044222

PATIENT
  Sex: Male

DRUGS (1)
  1. ENTRESTO [Suspect]
     Active Substance: SACUBITRIL\VALSARTAN
     Indication: Ejection fraction decreased
     Dosage: 1 DOSAGE FORM, BID (49/51 MG)
     Route: 048
     Dates: start: 202211

REACTIONS (7)
  - Dyspnoea [Unknown]
  - Paranasal sinus hypersecretion [Unknown]
  - Somnolence [Recovering/Resolving]
  - Swelling face [Unknown]
  - Toothache [Unknown]
  - Malaise [Unknown]
  - Inappropriate schedule of product administration [Recovering/Resolving]
